FAERS Safety Report 24591272 (Version 1)
Quarter: 2024Q4

REPORT INFORMATION
  Report Type: Spontaneous
  Country: US (occurrence: US)
  Receive Date: 20241108
  Receipt Date: 20241108
  Transmission Date: 20250115
  Serious: Yes (Other)
  Sender: ABBVIE
  Company Number: US-ABBVIE-5987139

PATIENT
  Age: 51 Year
  Sex: Male
  Weight: 77 kg

DRUGS (3)
  1. PRED FORTE [Suspect]
     Active Substance: PREDNISOLONE ACETATE
     Indication: Antiinflammatory therapy
     Dosage: 4 DROPS ON RIGHT EYE, 1 DROP ON LEFT EYE?FORM STRENGTH- PREDNISOLONE 10.5MG/ML SUS
     Route: 047
     Dates: start: 1998
  2. PRED FORTE [Suspect]
     Active Substance: PREDNISOLONE ACETATE
     Route: 047
  3. TIMOLOL [Concomitant]
     Active Substance: TIMOLOL\TIMOLOL MALEATE
     Indication: Intraocular pressure increased

REACTIONS (6)
  - Fall [Recovered/Resolved]
  - Blindness unilateral [Not Recovered/Not Resolved]
  - Memory impairment [Not Recovered/Not Resolved]
  - Injury [Recovered/Resolved]
  - Eye pain [Recovered/Resolved]
  - Product delivery mechanism issue [Not Recovered/Not Resolved]

NARRATIVE: CASE EVENT DATE: 19990101
